FAERS Safety Report 6305535-2 (Version None)
Quarter: 2009Q3

REPORT INFORMATION
  Report Type: 
  Country: None (occurrence: None)
  Receive Date: 20090807
  Receipt Date: 20090729
  Transmission Date: 20100115
  Serious: Yes (Other)
  Sender: FDA-Public Use
  Company Number: 2009SP014889

PATIENT
  Age: 62 Year
  Sex: Female

DRUGS (2)
  1. DESLORATADINE [Suspect]
     Indication: HYPERSENSITIVITY
     Dosage: 5 MG
     Dates: start: 20090626, end: 20090707
  2. DESLORATADINE [Suspect]
     Indication: RASH
     Dosage: 5 MG
     Dates: start: 20090626, end: 20090707

REACTIONS (2)
  - SKIN EXFOLIATION [None]
  - SKIN LESION [None]
